FAERS Safety Report 7070650-5 (Version None)
Quarter: 2010Q4

REPORT INFORMATION
  Report Type: 
  Country: None (occurrence: None)
  Receive Date: 20101029
  Receipt Date: 20101018
  Transmission Date: 20110411
  Serious: Yes (Hospitalization, Other)
  Sender: FDA-Public Use
  Company Number: NL-PFIZER INC-2010109207

PATIENT
  Age: 57 Year
  Sex: Female

DRUGS (6)
  1. EPANUTIN [Suspect]
     Indication: STATUS EPILEPTICUS
     Dosage: UNK
     Route: 042
     Dates: start: 20100827, end: 20100828
  2. CARBAMAZEPINE [Concomitant]
     Dosage: 800 MG/DAY
     Dates: start: 19980403
  3. LAMOTRIGINE [Concomitant]
     Dosage: 250 MG/DAY
     Dates: start: 20010503
  4. FRISIUM [Concomitant]
     Dosage: UNK
  5. DEPAKENE [Concomitant]
     Dosage: UNK
  6. VALPROIC ACID [Concomitant]
     Dosage: 2000 MG/DAY
     Dates: start: 19990907

REACTIONS (5)
  - BLISTER [None]
  - ERYTHEMA [None]
  - INCORRECT ROUTE OF DRUG ADMINISTRATION [None]
  - SKIN NECROSIS [None]
  - SKIN OEDEMA [None]
